FAERS Safety Report 9149908 (Version 1)
Quarter: 2013Q1

REPORT INFORMATION
  Report Type: Spontaneous
  Country: US (occurrence: None)
  Receive Date: 20130301
  Receipt Date: 20130301
  Transmission Date: 20140127
  Serious: Yes (Other)
  Sender: FDA-Public Use
  Company Number: None

PATIENT
  Age: 32 Year
  Sex: Male
  Weight: 97.52 kg

DRUGS (1)
  1. MIRENA IUD [Suspect]

REACTIONS (4)
  - Exposure via partner [None]
  - Penile haemorrhage [None]
  - Penis disorder [None]
  - Scar [None]
